FAERS Safety Report 18992932 (Version 1)
Quarter: 2021Q1

REPORT INFORMATION
  Report Type: Spontaneous
  Country: IN (occurrence: IN)
  Receive Date: 20210310
  Receipt Date: 20210310
  Transmission Date: 20210420
  Serious: Yes (Hospitalization, Other)
  Sender: FDA-Public Use
  Company Number: IN-GLAXOSMITHKLINE-INCH2021GSK011755

PATIENT
  Age: 47 Year
  Sex: Male

DRUGS (1)
  1. IBUPROFEN. [Suspect]
     Active Substance: IBUPROFEN
     Indication: POLYARTHRITIS
     Dosage: UNK

REACTIONS (13)
  - Melaena [Unknown]
  - Chromaturia [Unknown]
  - Haematemesis [Unknown]
  - Dyspnoea [Unknown]
  - Oedema peripheral [Unknown]
  - Hypophagia [Unknown]
  - Pyrexia [Unknown]
  - Faeces discoloured [Unknown]
  - Haematuria [Unknown]
  - Synovitis [Unknown]
  - Nephropathy [Unknown]
  - Decreased appetite [Unknown]
  - Mast cell activation syndrome [Unknown]
